FAERS Safety Report 11365696 (Version 1)
Quarter: 2015Q3

REPORT INFORMATION
  Report Type: Spontaneous
  Country: US (occurrence: US)
  Receive Date: 20150811
  Receipt Date: 20150811
  Transmission Date: 20151125
  Serious: No
  Sender: FDA-Public Use
  Company Number: US-ENDO PHARMACEUTICALS INC.-2015-001116

PATIENT
  Sex: Male

DRUGS (1)
  1. SUMAVEL DOSEPRO [Suspect]
     Active Substance: SUMATRIPTAN SUCCINATE
     Indication: ACCIDENTAL EXPOSURE TO PRODUCT
     Route: 058

REACTIONS (4)
  - Accidental exposure to product [Unknown]
  - Injection site pain [Unknown]
  - Injection site swelling [Unknown]
  - Drug administered at inappropriate site [Unknown]
